FAERS Safety Report 7025542-4 (Version None)
Quarter: 2010Q4

REPORT INFORMATION
  Report Type: 
  Country: None (occurrence: None)
  Receive Date: 20101003
  Receipt Date: 20100921
  Transmission Date: 20110411
  Serious: Yes (Other)
  Sender: FDA-Public Use
  Company Number: PHHY2010JP59813

PATIENT
  Age: 69 Year
  Sex: Female

DRUGS (4)
  1. DIOVAN [Suspect]
     Indication: HYPERTENSION
     Dosage: 80 MG DAILY
     Route: 048
     Dates: end: 20100823
  2. AMLODIPINE BESYLATE [Suspect]
     Dosage: UNK
     Route: 048
  3. DEPAS [Concomitant]
     Dosage: 1 MG
     Route: 048
  4. RHYTHMY [Concomitant]
     Dosage: 2 MG
     Route: 048

REACTIONS (2)
  - HERPES VIRUS INFECTION [None]
  - PEMPHIGUS [None]
